FAERS Safety Report 6828998-2 (Version None)
Quarter: 2010Q3

REPORT INFORMATION
  Report Type: 
  Country: None (occurrence: None)
  Receive Date: 20100709
  Receipt Date: 20070226
  Transmission Date: 20110219
  Serious: No
  Sender: FDA-Public Use
  Company Number: US-PFIZER INC-2007016111

PATIENT
  Sex: Female
  Weight: 72.12 kg

DRUGS (4)
  1. CHANTIX [Suspect]
     Indication: EX-TOBACCO USER
     Dates: start: 20070223
  2. FOSAMAX [Concomitant]
  3. NEXIUM [Concomitant]
  4. VITAMINS [Concomitant]

REACTIONS (4)
  - HYPERHIDROSIS [None]
  - INSOMNIA [None]
  - NAUSEA [None]
  - PSYCHOMOTOR HYPERACTIVITY [None]
